FAERS Safety Report 6328777-9 (Version None)
Quarter: 2009Q3

REPORT INFORMATION
  Report Type: 
  Country: None (occurrence: None)
  Receive Date: 20090818
  Receipt Date: 20090630
  Transmission Date: 20100115
  Serious: No
  Sender: FDA-Public Use
  Company Number: WAES 0907USA00040

PATIENT
  Age: 86 Year
  Sex: Female

DRUGS (8)
  1. JANUVIA [Suspect]
     Indication: TYPE 1 DIABETES MELLITUS
     Dosage: DAILY/PO
     Route: 048
     Dates: start: 20090619
  2. CLONIDINE [Concomitant]
  3. DICLOFENAC [Concomitant]
  4. FUROSEMIDE [Concomitant]
  5. INSULIN [Concomitant]
  6. LEVOTHYROXINE SODIUM [Concomitant]
  7. LISINOPRIL [Concomitant]
  8. METOLAZONE [Concomitant]

REACTIONS (3)
  - BLOOD GLUCOSE ABNORMAL [None]
  - OFF LABEL USE [None]
  - WRONG TECHNIQUE IN DRUG USAGE PROCESS [None]
